FAERS Safety Report 8545006-6 (Version None)
Quarter: 2012Q3

REPORT INFORMATION
  Report Type: 
  Country: None (occurrence: None)
  Receive Date: 20120727
  Receipt Date: 20120717
  Transmission Date: 20120928
  Serious: Yes (Death)
  Sender: FDA-Public Use
  Company Number: FR-GLAXOSMITHKLINE-B0815062A

PATIENT
  Age: 70 Year
  Sex: Male

DRUGS (7)
  1. PROPOFOL [Suspect]
     Indication: ANAESTHESIA
     Dosage: 300MG PER DAY
     Route: 051
     Dates: start: 20120605, end: 20120605
  2. ZANTAC [Suspect]
     Indication: PREMEDICATION
     Dosage: 300MG PER DAY
     Route: 048
     Dates: start: 20120605, end: 20120605
  3. CELOCURINE [Suspect]
     Indication: ANAESTHESIA
     Dosage: 60MG SINGLE DOSE
     Route: 042
     Dates: start: 20120605, end: 20120605
  4. KETAMINE HCL [Suspect]
     Indication: ANAESTHESIA
     Dosage: 20MG PER DAY
     Route: 051
     Dates: start: 20120605, end: 20120605
  5. SUFENTANIL CITRATE [Suspect]
     Indication: ANAESTHESIA
     Dosage: 10MCG PER DAY
     Route: 051
     Dates: start: 20120605, end: 20120605
  6. ALFUZOSIN HCL [Concomitant]
     Dosage: 10MG UNKNOWN
     Route: 048
  7. XANAX [Suspect]
     Indication: PREMEDICATION
     Dosage: .5MG SINGLE DOSE
     Route: 048
     Dates: start: 20120605, end: 20120605

REACTIONS (4)
  - VENTRICULAR EXTRASYSTOLES [None]
  - BRONCHOSPASM [None]
  - CIRCULATORY COLLAPSE [None]
  - ANAPHYLACTIC SHOCK [None]
